FAERS Safety Report 4816249-X (Version None)
Quarter: 2005Q4

REPORT INFORMATION
  Report Type: 
  Country: None (occurrence: None)
  Receive Date: 20051026
  Receipt Date: 20051011
  Transmission Date: 20060501
  Serious: Yes (Other)
  Sender: FDA-Public Use
  Company Number: 2005US001173

PATIENT
  Age: 58 Year
  Sex: Male

DRUGS (2)
  1. PROTOPIC [Suspect]
     Indication: BALANITIS
     Dosage: BID, TOPICAL
     Route: 061
     Dates: start: 20041201, end: 20050701
  2. VALTREX [Concomitant]

REACTIONS (1)
  - BOWEN'S DISEASE [None]
